FAERS Safety Report 6467214-0 (Version None)
Quarter: 2009Q4

REPORT INFORMATION
  Report Type: 
  Country: None (occurrence: None)
  Receive Date: 20091202
  Receipt Date: 20091126
  Transmission Date: 20100525
  Serious: Yes (Hospitalization)
  Sender: FDA-Public Use
  Company Number: CN-BAYER-200940439GPV

PATIENT
  Age: 56 Year
  Sex: Male

DRUGS (1)
  1. SORAFENIB [Suspect]
     Indication: RENAL CELL CARCINOMA
     Route: 048

REACTIONS (2)
  - CHEST DISCOMFORT [None]
  - CHEST PAIN [None]
